FAERS Safety Report 21354833 (Version 3)
Quarter: 2022Q4

REPORT INFORMATION
  Report Type: Spontaneous
  Country: US (occurrence: US)
  Receive Date: 20220920
  Receipt Date: 20221013
  Transmission Date: 20230113
  Serious: No
  Sender: FDA-Public Use
  Company Number: US-PFIZER INC-202201170059

PATIENT
  Age: 68 Year
  Sex: Female
  Weight: 113.38 kg

DRUGS (5)
  1. PAXLOVID [Suspect]
     Active Substance: NIRMATRELVIR\RITONAVIR
     Indication: COVID-19 treatment
     Dosage: UNK
     Dates: start: 20220906, end: 20220910
  2. TYLENOL [Concomitant]
     Active Substance: ACETAMINOPHEN
     Dosage: UNK, AS NEEDED
     Dates: start: 20220905, end: 20220921
  3. ROBITUSSIN DM COUGH CONTROL [Concomitant]
     Dosage: UNK UNK, AS NEEDED
     Dates: start: 20220905
  4. DM COUGH SYRUP [Concomitant]
     Dosage: UNK, AS NEEDED
     Dates: start: 20220905
  5. AFRIN [OXYMETAZOLINE] [Concomitant]
     Dosage: UNK
     Dates: start: 20220905

REACTIONS (6)
  - Dysgeusia [Recovered/Resolved]
  - Headache [Recovered/Resolved]
  - Nasal congestion [Not Recovered/Not Resolved]
  - Cough [Not Recovered/Not Resolved]
  - Sputum discoloured [Unknown]
  - Fatigue [Not Recovered/Not Resolved]

NARRATIVE: CASE EVENT DATE: 20220906
